FAERS Safety Report 8493669-6 (Version None)
Quarter: 2012Q3

REPORT INFORMATION
  Report Type: 
  Country: None (occurrence: None)
  Receive Date: 20120706
  Receipt Date: 20120618
  Transmission Date: 20120928
  Serious: No
  Sender: FDA-Public Use
  Company Number: US-ASTRAZENECA-2012SE41003

PATIENT
  Age: 84 Year
  Sex: Male
  Weight: 124.7 kg

DRUGS (6)
  1. NEURONTIN [Concomitant]
  2. CRESTOR [Suspect]
     Route: 048
     Dates: start: 20120101
  3. CRESTOR [Suspect]
     Dosage: 5 MG 1/2 TABLET
     Route: 048
     Dates: start: 20120101
  4. CRESTOR [Suspect]
     Indication: BLOOD CHOLESTEROL
     Route: 048
     Dates: start: 20110101
  5. CELEBREX [Concomitant]
  6. TENORMIN [Concomitant]

REACTIONS (2)
  - MYALGIA [None]
  - OFF LABEL USE [None]
